FAERS Safety Report 4325293-0 (Version None)
Quarter: 2004Q1

REPORT INFORMATION
  Report Type: 
  Country: None (occurrence: None)
  Receive Date: 20040326
  Receipt Date: 20040326
  Transmission Date: 20041129
  Serious: No
  Sender: FDA-Public Use
  Company Number: None

PATIENT
  Sex: Male
  Weight: 57.1 kg

DRUGS (2)
  1. OXYMETAZOLINE HCL [Suspect]
     Indication: VASOCONSTRICTION
     Dosage: DROPS ONCE NASAL
     Route: 045
     Dates: start: 20031229, end: 20031229
  2. GENERAL ANESTHESIA [Concomitant]

REACTIONS (1)
  - CULTURE POSITIVE [None]
